FAERS Safety Report 9553000 (Version 2)
Quarter: 2013Q4

REPORT INFORMATION
  Report Type: Spontaneous
  Country: AT (occurrence: AT)
  Receive Date: 20130925
  Receipt Date: 20131014
  Transmission Date: 20140711
  Serious: Yes (Death, Other)
  Sender: FDA-Public Use
  Company Number: AT-009507513-1309AUT008593

PATIENT
  Age: 65 Year
  Sex: Female

DRUGS (3)
  1. VICTRELIS [Suspect]
     Indication: HEPATITIS C
     Dosage: UNK
     Route: 048
     Dates: start: 20110720
  2. INTERFERON (UNSPECIFIED) [Suspect]
     Indication: HEPATITIS C
  3. RIBAVIRIN [Suspect]
     Indication: HEPATITIS C
     Route: 048

REACTIONS (6)
  - Sepsis [Fatal]
  - Liver disorder [Unknown]
  - Anaemia [Unknown]
  - Rash [Unknown]
  - Dysgeusia [Unknown]
  - Hepatitis C [Unknown]
